FAERS Safety Report 15333918 (Version 1)
Quarter: 2018Q3

REPORT INFORMATION
  Report Type: Spontaneous
  Country: US (occurrence: US)
  Receive Date: 20180825
  Receipt Date: 20180825
  Transmission Date: 20181010
  Serious: Yes (Other)
  Sender: FDA-Public Use
  Company Number: None

PATIENT
  Age: 9 Year
  Sex: Female
  Weight: 51.75 kg

DRUGS (1)
  1. SINGULAIR [Suspect]
     Active Substance: MONTELUKAST SODIUM
     Indication: SEASONAL ALLERGY
     Dosage: ?          QUANTITY:1 CAPSULE(S);OTHER ROUTE:MOUTH?
     Route: 048
     Dates: start: 20130801, end: 20180816

REACTIONS (11)
  - Nightmare [None]
  - Restlessness [None]
  - Hypertension [None]
  - Tourette^s disorder [None]
  - Tongue movement disturbance [None]
  - Tic [None]
  - Aggression [None]
  - Anger [None]
  - Anxiety [None]
  - Insomnia [None]
  - Tremor [None]

NARRATIVE: CASE EVENT DATE: 20130801
